FAERS Safety Report 13523351 (Version 2)
Quarter: 2019Q1

REPORT INFORMATION
  Report Type: Spontaneous
  Country: US (occurrence: US)
  Receive Date: 20170508
  Receipt Date: 20190305
  Transmission Date: 20190417
  Serious: No
  Sender: FDA-Public Use
  Company Number: US-VIFOR (INTERNATIONAL) INC.-VIT-2017-02865

PATIENT
  Age: 69 Year
  Sex: Male

DRUGS (12)
  1. OXYCODONE [Concomitant]
     Active Substance: OXYCODONE
  2. HYDRALAZINE [Concomitant]
     Active Substance: HYDRALAZINE HYDROCHLORIDE
  3. AMLODIPINE [Concomitant]
     Active Substance: AMLODIPINE BESYLATE
  4. PANTOPRAZOLE [Concomitant]
     Active Substance: PANTOPRAZOLE
  5. LEVEMIR [Concomitant]
     Active Substance: INSULIN DETEMIR
  6. VELTASSA [Suspect]
     Active Substance: PATIROMER
     Indication: HYPERKALAEMIA
     Route: 048
     Dates: start: 20161109
  7. GABAPENTIN. [Concomitant]
     Active Substance: GABAPENTIN
  8. NOVOLOG [Concomitant]
     Active Substance: INSULIN ASPART
  9. ASPIRIN. [Concomitant]
     Active Substance: ASPIRIN
  10. TAMSULOSIN [Concomitant]
     Active Substance: TAMSULOSIN
  11. FENTANYL. [Concomitant]
     Active Substance: FENTANYL
  12. PRAVASTATIN. [Concomitant]
     Active Substance: PRAVASTATIN

REACTIONS (3)
  - Abdominal distension [Not Recovered/Not Resolved]
  - Constipation [Not Recovered/Not Resolved]
  - Off label use [Unknown]

NARRATIVE: CASE EVENT DATE: 20161109
